FAERS Safety Report 5700334-4 (Version None)
Quarter: 2008Q2

REPORT INFORMATION
  Report Type: 
  Country: None (occurrence: None)
  Receive Date: 20080410
  Receipt Date: 20080328
  Transmission Date: 20081010
  Serious: Yes (Other)
  Sender: FDA-Public Use
  Company Number: JP-PFIZER INC-2008028491

PATIENT
  Age: 74 Year
  Sex: Male

DRUGS (3)
  1. CARDENALIN [Suspect]
     Indication: HYPERTENSION
     Dosage: DAILY DOSE:1MG
     Route: 048
  2. URIEF [Suspect]
     Indication: BENIGN PROSTATIC HYPERPLASIA
     Dosage: DAILY DOSE:8MG
     Route: 048
  3. ADALAT [Suspect]
     Indication: HYPERTENSION
     Dosage: DAILY DOSE:20MG
     Route: 048

REACTIONS (3)
  - DYSPHAGIA [None]
  - PHARYNGEAL OEDEMA [None]
  - PHARYNGOLARYNGEAL PAIN [None]
